FAERS Safety Report 17042815 (Version 1)
Quarter: 2019Q4

REPORT INFORMATION
  Report Type: Spontaneous
  Country: US (occurrence: US)
  Receive Date: 20191118
  Receipt Date: 20191118
  Transmission Date: 20200122
  Serious: Yes (Other)
  Sender: FDA-Public Use
  Company Number: US-PFIZER INC-2019491106

PATIENT
  Age: 57 Year
  Sex: Female
  Weight: 112.4 kg

DRUGS (3)
  1. GABAPENTIN. [Suspect]
     Active Substance: GABAPENTIN
     Indication: NEURALGIA
     Dosage: 100 MG, DAILY (TAKE 1 CAPSULE AT LUNCH TIME)
     Route: 048
     Dates: start: 201005
  2. GABAPENTIN. [Suspect]
     Active Substance: GABAPENTIN
     Dosage: 700 MG, DAILY ( TAKING 600 MG IN THE MORNING AND NIGHT AND 100 MG IN THE AFTERNOON)
  3. GABAPENTIN. [Suspect]
     Active Substance: GABAPENTIN
     Indication: NEUROPATHY PERIPHERAL
     Dosage: 1200 MG, DAILY [TAKE 2 IN THE MORNING AND 2 AT NIGHT BY MOUTH]
     Route: 048
     Dates: start: 201905

REACTIONS (5)
  - Rheumatoid arthritis [Unknown]
  - Ligament rupture [Unknown]
  - Product use in unapproved indication [Unknown]
  - Off label use [Unknown]
  - Alopecia [Not Recovered/Not Resolved]

NARRATIVE: CASE EVENT DATE: 201005
